FAERS Safety Report 6972280-X (Version None)
Quarter: 2010Q3

REPORT INFORMATION
  Report Type: 
  Country: None (occurrence: None)
  Receive Date: 20100909
  Receipt Date: 20100826
  Transmission Date: 20110219
  Serious: Yes (Other)
  Sender: FDA-Public Use
  Company Number: DE-ELI_LILLY_AND_COMPANY-DE201008007933

PATIENT
  Age: 70 Year
  Sex: Female

DRUGS (3)
  1. FORTEO [Suspect]
     Indication: OSTEOPOROSIS
     Dosage: UNK, DAILY (1/D)
     Route: 058
     Dates: start: 20091001
  2. VITAMIN D [Concomitant]
     Dosage: UNK, UNKNOWN
     Route: 065
  3. THYROID HORMONES [Concomitant]
     Dosage: UNK, UNKNOWN
     Route: 065

REACTIONS (2)
  - RENAL HAEMORRHAGE [None]
  - URINE ANALYSIS ABNORMAL [None]
